FAERS Safety Report 9557417 (Version 1)
Quarter: 2013Q3

REPORT INFORMATION
  Report Type: Spontaneous
  Country: US (occurrence: None)
  Receive Date: 20130726
  Receipt Date: 20130726
  Transmission Date: 20140515
  Serious: Yes (Hospitalization)
  Sender: FDA-Public Use
  Company Number: UTC-018907

PATIENT
  Age: 46 Year
  Sex: Female
  Weight: 92.7 kg

DRUGS (4)
  1. TYVASO (6 MICROGRAM, AEROSOL FOR INHALATION) (TRESPROSTINIL SODIUM) [Suspect]
     Indication: HIV TEST POSITIVE
     Dosage: 18-54 MCG(4 IN 1 D) INHALATION
     Dates: start: 20110404
  2. ADCIRCA(TADALAFIL) [Concomitant]
  3. DIURETICS(DIURETICS) [Concomitant]
  4. CARDIZEM(DILTIAZEM) [Concomitant]

REACTIONS (1)
  - Haemoptysis [None]
